FAERS Safety Report 5730785-3 (Version None)
Quarter: 2008Q2

REPORT INFORMATION
  Report Type: 
  Country: None (occurrence: None)
  Receive Date: 20080507
  Receipt Date: 20080425
  Transmission Date: 20081010
  Serious: Yes (Other)
  Sender: FDA-Public Use
  Company Number: US-PFIZER INC-2008026059

PATIENT
  Sex: Female
  Weight: 49.9 kg

DRUGS (4)
  1. CHANTIX [Suspect]
     Indication: SMOKING CESSATION THERAPY
  2. VITAMIN D [Concomitant]
  3. ALL OTHER THERAPEUTIC PRODUCTS [Concomitant]
  4. PROZAC [Concomitant]

REACTIONS (16)
  - ABNORMAL DREAMS [None]
  - ADVERSE DRUG REACTION [None]
  - ANGER [None]
  - ANXIETY [None]
  - CRYING [None]
  - DEPRESSION [None]
  - DISTURBANCE IN ATTENTION [None]
  - DIZZINESS [None]
  - FEELING ABNORMAL [None]
  - FRUSTRATION [None]
  - HEADACHE [None]
  - HOSTILITY [None]
  - IMPATIENCE [None]
  - IRRITABILITY [None]
  - SOCIAL AVOIDANT BEHAVIOUR [None]
  - SOMNOLENCE [None]
